FAERS Safety Report 9580676 (Version 1)
Quarter: 2013Q3

REPORT INFORMATION
  Report Type: Spontaneous
  Country: US (occurrence: None)
  Receive Date: 20130916
  Receipt Date: 20130916
  Transmission Date: 20140515
  Serious: Yes (Other)
  Sender: FDA-Public Use
  Company Number: JPI-P-033801

PATIENT
  Age: 32 Year
  Sex: Female

DRUGS (8)
  1. XYREM [Suspect]
     Indication: CATAPLEXY
     Dosage: 4.5 GM (2.25 GM, 2 IN 1 D), ORAL
     Route: 048
     Dates: start: 20130607, end: 201306
  2. FLUVOXAMINE MALEATE [Suspect]
     Indication: DEPRESSION
  3. ALPRAZOLAM [Suspect]
     Indication: ANXIETY
     Dates: end: 2013
  4. THYROID DESICCATED [Concomitant]
  5. MIDODRINE [Concomitant]
  6. ARMODAFINIL [Concomitant]
  7. AMPHETAMINE SALTS [Concomitant]
  8. MELATONIN [Concomitant]

REACTIONS (3)
  - Depression [None]
  - Panic attack [None]
  - Somnolence [None]
